FAERS Safety Report 8372097-8 (Version None)
Quarter: 2012Q2

REPORT INFORMATION
  Report Type: 
  Country: None (occurrence: None)
  Receive Date: 20120520
  Receipt Date: 20120515
  Transmission Date: 20120825
  Serious: Yes (Other)
  Sender: FDA-Public Use
  Company Number: US-AMGEN-USASP2012030631

PATIENT
  Sex: Female

DRUGS (3)
  1. ABRAXANE [Concomitant]
     Indication: BREAST CANCER
  2. NEUPOGEN [Suspect]
     Indication: NEUTROPENIA
  3. HERCEPTIN [Concomitant]
     Indication: BREAST CANCER

REACTIONS (1)
  - THERAPEUTIC RESPONSE DECREASED [None]
